FAERS Safety Report 8017731 (Version 19)
Quarter: 2017Q1

REPORT INFORMATION
  Report Type: Report from Study
  Country: CA (occurrence: CA)
  Receive Date: 20110630
  Receipt Date: 20170114
  Transmission Date: 20170429
  Serious: Yes (Other)
  Sender: FDA-Public Use
  Company Number: PHHY2010CA42897

PATIENT
  Age: 64 Year
  Sex: Female

DRUGS (2)
  1. SANDOSTATIN LAR DEPOT [Suspect]
     Active Substance: OCTREOTIDE ACETATE
     Dosage: 10 MG, QMO
     Route: 030
  2. SANDOSTATIN LAR DEPOT [Suspect]
     Active Substance: OCTREOTIDE ACETATE
     Indication: CARCINOID TUMOUR
     Dosage: 20 MG, QMO (EVERY 4 WEEKS)
     Route: 030
     Dates: start: 20070104

REACTIONS (18)
  - Fall [Unknown]
  - Blood pressure diastolic increased [Unknown]
  - Heart rate increased [Unknown]
  - Blood pressure increased [Unknown]
  - Blood pressure decreased [Unknown]
  - Swelling [Unknown]
  - Diabetes mellitus [Unknown]
  - Productive cough [Unknown]
  - Contusion [Unknown]
  - Lung neoplasm [Unknown]
  - Body temperature decreased [Unknown]
  - Balance disorder [Unknown]
  - Diarrhoea [Unknown]
  - Nasopharyngitis [Unknown]
  - Cough [Unknown]
  - Hand fracture [Unknown]
  - Pain in extremity [Unknown]
  - Skin tightness [Unknown]

NARRATIVE: CASE EVENT DATE: 20130101
